FAERS Safety Report 23919860 (Version 1)
Quarter: 2024Q2

REPORT INFORMATION
  Report Type: Spontaneous
  Country: US (occurrence: None)
  Receive Date: 20240529
  Receipt Date: 20240529
  Transmission Date: 20240716
  Serious: Yes (Hospitalization)
  Sender: FDA-Public Use
  Company Number: None

PATIENT
  Sex: Male

DRUGS (5)
  1. SILDENAFIL CITRATE [Suspect]
     Active Substance: SILDENAFIL CITRATE
     Indication: Pulmonary arterial hypertension
     Dosage: FREQUENCY : TWICE A DAY;?
     Route: 048
     Dates: start: 202403
  2. OFEV [Concomitant]
     Active Substance: NINTEDANIB
  3. PREDNISONE [Concomitant]
     Active Substance: PREDNISONE
  4. DOXYDCYCLINE [Concomitant]
  5. TYVASO DPI MAINT KIT PWD [Concomitant]

REACTIONS (4)
  - Respiratory distress [None]
  - Extra dose administered [None]
  - Infection [None]
  - Oxygen saturation decreased [None]
